FAERS Safety Report 8179767-5 (Version None)
Quarter: 2012Q1

REPORT INFORMATION
  Report Type: 
  Country: None (occurrence: None)
  Receive Date: 20120229
  Receipt Date: 20120229
  Transmission Date: 20120608
  Serious: Yes (Life-Threatening, Hospitalization)
  Sender: FDA-Public Use
  Company Number: None

PATIENT
  Age: 75 Year
  Sex: Male
  Weight: 104.5 kg

DRUGS (1)
  1. MOXIFLOXACIN [Suspect]
     Indication: PNEUMONIA
     Dosage: 400 MG ONCE PO
     Route: 048
     Dates: start: 20111125, end: 20111125

REACTIONS (4)
  - DROOLING [None]
  - EYE MOVEMENT DISORDER [None]
  - BRADYCARDIA [None]
  - SYNCOPE [None]
